FAERS Safety Report 9685448 (Version 1)
Quarter: 2013Q4

REPORT INFORMATION
  Report Type: Spontaneous
  Country: US (occurrence: None)
  Receive Date: 20131112
  Receipt Date: 20131112
  Transmission Date: 20140711
  Serious: Yes (Hospitalization)
  Sender: FDA-Public Use
  Company Number: None

PATIENT
  Age: 46 Year
  Sex: Female
  Weight: 40.8 kg

DRUGS (3)
  1. CISPLATIN [Suspect]
  2. IV ANTIBIOTIC [Concomitant]
  3. RBC TRANSFUSION [Concomitant]

REACTIONS (3)
  - Urinary tract infection [None]
  - Anaemia [None]
  - Oedema peripheral [None]
